FAERS Safety Report 8891095 (Version 2)
Quarter: 2012Q4

REPORT INFORMATION
  Report Type: 
  Country: DE (occurrence: JP)
  Receive Date: 20121107
  Receipt Date: 20121129
  Transmission Date: 20130627
  Serious: Yes (Life-Threatening, Hospitalization)
  Sender: FDA-Public Use
  Company Number: JP-BRISTOL-MYERS SQUIBB COMPANY-17099722

PATIENT
  Age: 84 Year
  Sex: Female

DRUGS (10)
  1. METGLUCO [Suspect]
     Indication: DIABETES MELLITUS
     Route: 048
     Dates: end: 20120806
  2. GLIMEPIRIDE [Suspect]
     Indication: DIABETES MELLITUS
     Route: 048
     Dates: end: 20120806
  3. HUMULIN [Suspect]
     Indication: DIABETES MELLITUS
     Dosage: 8IU
     Route: 058
     Dates: end: 20120806
  4. ACTOS [Suspect]
     Indication: DIABETES MELLITUS
     Route: 048
     Dates: end: 20120806
  5. KALIMATE [Concomitant]
     Indication: HYPERKALAEMIA
     Route: 048
  6. ADALAT-CR [Concomitant]
     Indication: HYPERTENSION
     Route: 048
  7. DIOVAN [Concomitant]
     Indication: HYPERTENSION
     Route: 048
  8. BAYASPIRIN [Concomitant]
     Route: 048
     Dates: end: 20120806
  9. LIVALO [Concomitant]
     Indication: DYSLIPIDAEMIA
     Route: 048
     Dates: end: 20120806
  10. PROTECADIN [Concomitant]
     Route: 048
     Dates: end: 20120806

REACTIONS (3)
  - Metabolic acidosis [Recovered/Resolved]
  - Altered state of consciousness [Recovered/Resolved]
  - Multi-organ disorder [Recovering/Resolving]
